FAERS Safety Report 9153647 (Version 1)
Quarter: 2013Q1

REPORT INFORMATION
  Report Type: Spontaneous
  Country: FR (occurrence: FR)
  Receive Date: 20130214
  Receipt Date: 20130214
  Transmission Date: 20140127
  Serious: Yes (Hospitalization, Other)
  Sender: FDA-Public Use
  Company Number: FR-RB-PR/990115/61

PATIENT
  Sex: Female

DRUGS (1)
  1. SUBUTEX [Suspect]
     Indication: DRUG ABUSE
     Route: 060

REACTIONS (5)
  - Exposure during pregnancy [Recovered/Resolved]
  - Ventricular septal defect [Recovered/Resolved]
  - Amniotic cavity infection [Recovered/Resolved]
  - Haemophilus infection [Recovered/Resolved]
  - Abortion spontaneous [Recovered/Resolved]
